FAERS Safety Report 6520624-5 (Version None)
Quarter: 2009Q4

REPORT INFORMATION
  Report Type: 
  Country: None (occurrence: None)
  Receive Date: 20091229
  Receipt Date: 20091222
  Transmission Date: 20100525
  Serious: Yes (Other)
  Sender: FDA-Public Use
  Company Number: US-B.I. PHARMACEUTICALS,INC./RIDGEFIELD-2009-BP-14706BP

PATIENT
  Age: 20 Year
  Sex: Female

DRUGS (1)
  1. DULCOLAX [Suspect]
     Indication: BULIMIA NERVOSA

REACTIONS (1)
  - DRUG ABUSE [None]
